FAERS Safety Report 13760411 (Version 2)
Quarter: 2017Q4

REPORT INFORMATION
  Report Type: Spontaneous
  Country: US (occurrence: US)
  Receive Date: 20170717
  Receipt Date: 20171012
  Transmission Date: 20180320
  Serious: Yes (Other)
  Sender: FDA-Public Use
  Company Number: US-DEPOMED, INC.-US-2017DEP001417

PATIENT

DRUGS (4)
  1. GRALISE [Suspect]
     Active Substance: GABAPENTIN
     Indication: POST HERPETIC NEURALGIA
  2. GRALISE [Suspect]
     Active Substance: GABAPENTIN
     Indication: MULTIPLE SCLEROSIS
  3. NORCO [Concomitant]
     Active Substance: ACETAMINOPHEN\HYDROCODONE BITARTRATE
     Indication: PAIN
     Dosage: 60 MG, BID
     Route: 048
     Dates: start: 20161215, end: 20170727
  4. GRALISE [Suspect]
     Active Substance: GABAPENTIN
     Indication: PAIN
     Dosage: 1200 MG, QD
     Route: 048
     Dates: start: 20170207

REACTIONS (3)
  - Drug titration error [Not Recovered/Not Resolved]
  - Bladder neoplasm surgery [Recovering/Resolving]
  - Product use in unapproved indication [Not Recovered/Not Resolved]

NARRATIVE: CASE EVENT DATE: 20170207
